FAERS Safety Report 4854226-3 (Version None)
Quarter: 2005Q4

REPORT INFORMATION
  Report Type: 
  Country: None (occurrence: None)
  Receive Date: 20051213
  Receipt Date: 20051213
  Transmission Date: 20060501
  Serious: Yes (Hospitalization)
  Sender: FDA-Public Use
  Company Number: None

PATIENT
  Age: 21 Year
  Sex: Female
  Weight: 72 kg

DRUGS (9)
  1. KETOROLAC  30 MG/ML- 1 ML VIAL  ABBOTT [Suspect]
     Indication: SHOULDER PAIN
     Dosage: 30 MG  Q 6 HOURS  IV BOLUS
     Route: 040
     Dates: start: 20051104, end: 20051105
  2. VANCOMYCIN [Suspect]
     Indication: INFECTION
     Dosage: 1000 MG  Q  12 HOURS  IV    11 DOSES
     Route: 042
     Dates: start: 20051103, end: 20051108
  3. ENALAPRIL [Concomitant]
  4. SPIRONOLACTONE [Concomitant]
  5. ZOSYN [Concomitant]
  6. FUROSEMIDE [Concomitant]
  7. WARFARIN [Concomitant]
  8. IBUPROFEN [Concomitant]
  9. KETOROLAC TROMETHAMINE [Concomitant]

REACTIONS (4)
  - ANTIBIOTIC LEVEL ABOVE THERAPEUTIC [None]
  - NEPHROPATHY TOXIC [None]
  - RENAL IMPAIRMENT [None]
  - RENAL TUBULAR DISORDER [None]
